FAERS Safety Report 4874276-0 (Version None)
Quarter: 2005Q4

REPORT INFORMATION
  Report Type: 
  Country: None (occurrence: None)
  Receive Date: 20051201
  Receipt Date: 20050810
  Transmission Date: 20060501
  Serious: No
  Sender: FDA-Public Use
  Company Number: 2005PV001012

PATIENT
  Age: 58 Year
  Sex: Female
  Weight: 99.7913 kg

DRUGS (8)
  1. BYETTA [Suspect]
     Indication: DIABETES MELLITUS NON-INSULIN-DEPENDENT
     Dosage: SEE IMAGE
     Route: 058
     Dates: start: 20050701, end: 20050805
  2. BYETTA [Suspect]
     Indication: DIABETES MELLITUS NON-INSULIN-DEPENDENT
     Dosage: SEE IMAGE
     Route: 058
     Dates: start: 20050809
  3. DIOVAN [Concomitant]
  4. ZOCOR [Concomitant]
  5. KETOPROFEN [Concomitant]
  6. METFORMIN HCL [Concomitant]
  7. SINGULAIR [Concomitant]
  8. METHOTREXATE [Concomitant]

REACTIONS (3)
  - BRONCHITIS [None]
  - INJECTION SITE ERYTHEMA [None]
  - INJECTION SITE RASH [None]
